FAERS Safety Report 7629328-9 (Version None)
Quarter: 2011Q3

REPORT INFORMATION
  Report Type: 
  Country: None (occurrence: None)
  Receive Date: 20110722
  Receipt Date: 20110713
  Transmission Date: 20111222
  Serious: Yes (Hospitalization, Other)
  Sender: FDA-Public Use
  Company Number: US-BAYER-2011-029691

PATIENT
  Age: 20 Year
  Sex: Female
  Weight: 61.224 kg

DRUGS (10)
  1. YAZ [Suspect]
     Indication: CONTRACEPTION
     Dosage: UNK
     Dates: start: 20061201, end: 20071201
  2. HYOSCYAMINE [Concomitant]
     Indication: GASTROINTESTINAL DISORDER
     Dosage: 125 MG, UNK
     Route: 048
     Dates: start: 20060101, end: 20070101
  3. ATIVAN [Concomitant]
  4. KLONOPIN [Concomitant]
  5. HUMALOG [Concomitant]
     Indication: TYPE 1 DIABETES MELLITUS
     Dosage: DAILY DOSE 100 U
     Route: 058
     Dates: start: 20040101
  6. YAZ [Suspect]
     Indication: PREMENSTRUAL SYNDROME
  7. LANTUS [Concomitant]
     Indication: TYPE 1 DIABETES MELLITUS
     Dosage: DAILY DOSE 25 U
     Route: 058
  8. BELLATAL [Concomitant]
     Route: 048
  9. ZOLOFT [Concomitant]
  10. BROVEX [Concomitant]
     Route: 048

REACTIONS (6)
  - GALLBLADDER DISORDER [None]
  - INJURY [None]
  - PAIN [None]
  - CHOLELITHIASIS [None]
  - EMOTIONAL DISTRESS [None]
  - CHOLECYSTITIS CHRONIC [None]
